APPROVED DRUG PRODUCT: FLUTICASONE PROPIONATE
Active Ingredient: FLUTICASONE PROPIONATE
Strength: 0.005%
Dosage Form/Route: OINTMENT;TOPICAL
Application: A076668 | Product #001 | TE Code: AB
Applicant: PADAGIS ISRAEL PHARMACEUTICALS LTD
Approved: May 14, 2004 | RLD: No | RS: Yes | Type: RX